FAERS Safety Report 8950325 (Version 1)
Quarter: 2012Q4

REPORT INFORMATION
  Report Type: Spontaneous
  Country: US (occurrence: None)
  Receive Date: 20121203
  Receipt Date: 20121203
  Transmission Date: 20130627
  Serious: Yes (Other)
  Sender: FDA-Public Use
  Company Number: None

PATIENT
  Age: 46 Year
  Sex: Female
  Weight: 77.11 kg

DRUGS (4)
  1. FENTANYL [Suspect]
     Indication: CHRONIC BACK PAIN
     Route: 062
     Dates: start: 20121120, end: 20121129
  2. FENTANYL [Suspect]
     Indication: ARACHNOIDITIS
     Route: 062
     Dates: start: 20121120, end: 20121129
  3. FENTANYL [Suspect]
     Indication: COMPLEX REGIONAL PAIN SYNDROME
     Route: 062
     Dates: start: 20121120, end: 20121129
  4. FENTANYL PATCH [Concomitant]

REACTIONS (8)
  - Product quality issue [None]
  - Drug effect incomplete [None]
  - Drug effect increased [None]
  - Urticaria [None]
  - Rash [None]
  - Hypersomnia [None]
  - Dyspnoea [None]
  - Hypopnoea [None]
